FAERS Safety Report 8982974 (Version 2)
Quarter: 2013Q1

REPORT INFORMATION
  Report Type: Spontaneous
  Country: JP (occurrence: JP)
  Receive Date: 20121221
  Receipt Date: 20130204
  Transmission Date: 20140127
  Serious: Yes (Hospitalization)
  Sender: FDA-Public Use
  Company Number: PHHY2012JP118141

PATIENT
  Age: 2 Year
  Sex: Male

DRUGS (1)
  1. AMOXICILLIN [Suspect]
     Indication: NASOPHARYNGITIS
     Route: 048
     Dates: start: 200712

REACTIONS (12)
  - Psoriasis [Not Recovered/Not Resolved]
  - Pustular psoriasis [Not Recovered/Not Resolved]
  - Rash [Not Recovered/Not Resolved]
  - Fatigue [Unknown]
  - Acute generalised exanthematous pustulosis [Unknown]
  - Erythema [Unknown]
  - Rash pustular [Unknown]
  - Pyrexia [Unknown]
  - Bacterial infection [Unknown]
  - Generalised erythema [Not Recovered/Not Resolved]
  - Skin oedema [Not Recovered/Not Resolved]
  - Skin exfoliation [Not Recovered/Not Resolved]
